FAERS Safety Report 8391699-6 (Version None)
Quarter: 2012Q2

REPORT INFORMATION
  Report Type: 
  Country: None (occurrence: None)
  Receive Date: 20120529
  Receipt Date: 20120525
  Transmission Date: 20120825
  Serious: Yes (Other)
  Sender: FDA-Public Use
  Company Number: PHHY2012BR045531

PATIENT
  Age: 74 Year
  Sex: Female

DRUGS (1)
  1. EXFORGE [Suspect]
     Indication: HYPERTENSION
     Dosage: 1 DF (320/5 MG), DAILY
     Dates: start: 20120522

REACTIONS (11)
  - CYST [None]
  - MALAISE [None]
  - NAUSEA [None]
  - FALL [None]
  - SPINAL FRACTURE [None]
  - LIVER DISORDER [None]
  - RENAL DISORDER [None]
  - FEAR [None]
  - DRUG INTOLERANCE [None]
  - HEART RATE INCREASED [None]
  - PAIN [None]
